FAERS Safety Report 6062489-4 (Version None)
Quarter: 2009Q1

REPORT INFORMATION
  Report Type: 
  Country: None (occurrence: None)
  Receive Date: 20090202
  Receipt Date: 20090202
  Transmission Date: 20090719
  Serious: Yes (Hospitalization, Disabling, Other)
  Sender: FDA-Public Use
  Company Number: None

PATIENT
  Age: 46 Year
  Sex: Female
  Weight: 54.4316 kg

DRUGS (3)
  1. CYMBALTA [Suspect]
     Indication: DEPRESSION
     Dosage: 60 MG 2X/DAY PO
     Route: 048
     Dates: start: 20060328, end: 20090112
  2. SONOTA [Concomitant]
  3. XANAX [Concomitant]

REACTIONS (11)
  - BLOOD PRESSURE FLUCTUATION [None]
  - DEHYDRATION [None]
  - HYPOPHAGIA [None]
  - INNER EAR DISORDER [None]
  - INSOMNIA [None]
  - MALAISE [None]
  - MOVEMENT DISORDER [None]
  - NAUSEA [None]
  - PALPITATIONS [None]
  - TREMOR [None]
  - VOMITING [None]
